FAERS Safety Report 5328817-X (Version None)
Quarter: 2007Q2

REPORT INFORMATION
  Report Type: 
  Country: None (occurrence: None)
  Receive Date: 20070518
  Receipt Date: 20070508
  Transmission Date: 20071010
  Serious: Yes (Hospitalization)
  Sender: FDA-Public Use
  Company Number: IE-MERCK-0705GBR00034

PATIENT

DRUGS (1)
  1. CANCIDAS [Suspect]
     Route: 051

REACTIONS (1)
  - ARRHYTHMIA [None]
